FAERS Safety Report 10688126 (Version 2)
Quarter: 2015Q2

REPORT INFORMATION
  Report Type: Report from Study
  Country: DE (occurrence: DE)
  Receive Date: 20150102
  Receipt Date: 20150429
  Transmission Date: 20150821
  Serious: Yes (Hospitalization)
  Sender: FDA-Public Use
  Company Number: DE-TEVA-531598GER

PATIENT
  Age: 50 Year
  Sex: Female
  Weight: 66 kg

DRUGS (2)
  1. GEMCITABINE [Suspect]
     Active Substance: GEMCITABINE\GEMCITABINE HYDROCHLORIDE
     Indication: BREAST CANCER FEMALE
     Dosage: 1750 MG/M2 ON DAY 1 AND 8 EVERY THREE WEEKS; LAST DOSE PRIOR TO THE SAE: 15-APR-2014
     Route: 042
     Dates: start: 20140408
  2. ABRAXANE [Suspect]
     Active Substance: PACLITAXEL
     Indication: BREAST CANCER FEMALE
     Dosage: 218 MG ON DAY 1 AND 8 EVERY THREE WEEKS; LAST DOSE PRIOR TO THE SAE: 15-APR-2014
     Route: 042
     Dates: start: 20140408

REACTIONS (1)
  - Urinary retention [Recovered/Resolved]

NARRATIVE: CASE EVENT DATE: 20140421
